FAERS Safety Report 6012399-3 (Version None)
Quarter: 2008Q4

REPORT INFORMATION
  Report Type: 
  Country: None (occurrence: None)
  Receive Date: 20081218
  Receipt Date: 20081006
  Transmission Date: 20090506
  Serious: No
  Sender: FDA-Public Use
  Company Number: US-ASTRAZENECA-2008UW21769

PATIENT
  Age: 77 Year
  Sex: Male
  Weight: 77.1 kg

DRUGS (1)
  1. SYMBICORT [Suspect]
     Indication: COUGH
     Dosage: 160/4.5 TWO PUFFS TWICE DAILY
     Route: 055
     Dates: start: 20080801

REACTIONS (2)
  - DYSPHONIA [None]
  - THROAT IRRITATION [None]
